FAERS Safety Report 7703542-6 (Version None)
Quarter: 2011Q3

REPORT INFORMATION
  Report Type: 
  Country: None (occurrence: None)
  Receive Date: 20110823
  Receipt Date: 20110808
  Transmission Date: 20111222
  Serious: Yes (Other)
  Sender: FDA-Public Use
  Company Number: PHHY2011BR72837

PATIENT
  Age: 48 Year
  Sex: Female

DRUGS (2)
  1. VOLTAREN [Suspect]
     Indication: MIGRAINE
     Dosage: 50 MG, PRN
     Route: 054
  2. VOLTAREN [Suspect]
     Dosage: 75 MG, UNK
     Dates: start: 20110806

REACTIONS (2)
  - MIGRAINE [None]
  - PANIC DISORDER [None]
